FAERS Safety Report 16874997 (Version 2)
Quarter: 2019Q4

REPORT INFORMATION
  Report Type: Spontaneous
  Country: US (occurrence: US)
  Receive Date: 20191001
  Receipt Date: 20191024
  Transmission Date: 20200122
  Serious: No
  Sender: FDA-Public Use
  Company Number: US-JNJFOC-20190932769

PATIENT
  Age: 63 Year
  Sex: Male
  Weight: 61.29 kg

DRUGS (1)
  1. SIMPONI ARIA [Suspect]
     Active Substance: GOLIMUMAB
     Indication: RHEUMATOID ARTHRITIS
     Route: 042

REACTIONS (2)
  - Product label issue [Unknown]
  - Intercepted product preparation error [Recovered/Resolved]

NARRATIVE: CASE EVENT DATE: 20190924
